FAERS Safety Report 8536200-9 (Version None)
Quarter: 2012Q3

REPORT INFORMATION
  Report Type: 
  Country: None (occurrence: None)
  Receive Date: 20120725
  Receipt Date: 20120717
  Transmission Date: 20120928
  Serious: Yes (Death, Life-Threatening, Hospitalization)
  Sender: FDA-Public Use
  Company Number: NL-JNJFOC-20120521394

PATIENT
  Sex: Female
  Weight: 118 kg

DRUGS (22)
  1. SEROQUEL [Concomitant]
  2. ALBUTEROL SULFATE AND IPRATROPIUM BROMIDE [Concomitant]
  3. XARELTO [Suspect]
     Indication: THROMBOSIS PROPHYLAXIS
     Route: 065
     Dates: start: 20120522, end: 20120524
  4. METFORMIN HCL [Concomitant]
  5. DEPAKENE [Concomitant]
  6. NOZINAN [Concomitant]
  7. PANTOPRAZOLE [Concomitant]
  8. ACETAMINOPHEN [Concomitant]
  9. IMIPRAMINE HCL [Concomitant]
  10. MIRTAZAPINE [Concomitant]
  11. LITHIUM CARBONATE [Concomitant]
  12. NITRAZEPAM [Concomitant]
  13. MICROLAX (SODIUM CITRATE, SODIUM LAURYL SULFOACETATE) [Concomitant]
     Route: 054
  14. PROMETHAZINE [Concomitant]
  15. LEVOTHYROXINE SODIUM [Concomitant]
  16. XARELTO [Suspect]
     Indication: KNEE ARTHROPLASTY
     Route: 065
     Dates: start: 20120522, end: 20120524
  17. OXAZEPAM [Concomitant]
  18. SUMATRIPTAN SUCCINATE [Concomitant]
  19. MORPHINE SULFATE [Concomitant]
  20. GAVISCON (ANTACID) [Concomitant]
     Route: 048
  21. METOCLOPRAMIDE [Concomitant]
  22. PRUNASINE [Concomitant]

REACTIONS (1)
  - PULMONARY EMBOLISM [None]
